FAERS Safety Report 6863254-8 (Version None)
Quarter: 2010Q3

REPORT INFORMATION
  Report Type: 
  Country: None (occurrence: None)
  Receive Date: 20100721
  Receipt Date: 20100714
  Transmission Date: 20110219
  Serious: Yes (Other)
  Sender: FDA-Public Use
  Company Number: US-JNJFOC-20100704879

PATIENT
  Sex: Male
  Weight: 113.4 kg

DRUGS (5)
  1. DURAGESIC-100 [Suspect]
     Indication: PAIN
     Route: 062
  2. SANDOZ FENTANYL TRANSDERMAL SYSTEM [Suspect]
     Indication: PAIN
     Route: 062
  3. SANDOZ FENTANYL TRANSDERMAL SYSTEM [Suspect]
     Route: 062
  4. SANDOZ FENTANYL TRANSDERMAL SYSTEM [Suspect]
     Route: 062
  5. ELIGARD [Suspect]
     Indication: PROSTATE CANCER
     Route: 065

REACTIONS (4)
  - HOT FLUSH [None]
  - PRODUCT ADHESION ISSUE [None]
  - PROSTATE CANCER [None]
  - THERAPEUTIC RESPONSE DECREASED [None]
